APPROVED DRUG PRODUCT: METHYLPHENIDATE HYDROCHLORIDE
Active Ingredient: METHYLPHENIDATE HYDROCHLORIDE
Strength: 5MG
Dosage Form/Route: TABLET;ORAL
Application: A207416 | Product #001 | TE Code: AB
Applicant: ASCENT PHARMACEUTICALS INC
Approved: Sep 22, 2015 | RLD: No | RS: No | Type: RX